FAERS Safety Report 14823202 (Version 1)
Quarter: 2018Q2

REPORT INFORMATION
  Report Type: Spontaneous
  Country: DE (occurrence: DE)
  Receive Date: 20180427
  Receipt Date: 20180427
  Transmission Date: 20180711
  Serious: Yes (Hospitalization)
  Sender: FDA-Public Use
  Company Number: PHHY2015DE177694

PATIENT
  Age: 84 Year
  Sex: Male
  Weight: 94 kg

DRUGS (31)
  1. XELODA [Suspect]
     Active Substance: CAPECITABINE
     Dosage: 500 MG, Q3W
     Route: 048
     Dates: start: 20150915, end: 20150922
  2. OXALIPLATIN. [Suspect]
     Active Substance: OXALIPLATIN
     Indication: COLORECTAL CANCER
     Dosage: 178 MG, Q2W
     Route: 042
     Dates: start: 20141016, end: 20150302
  3. XELODA [Suspect]
     Active Substance: CAPECITABINE
     Dosage: 2000 MG, UNK (D1 TO D14 OF EACH 3 WEEK CYCLE)
     Route: 048
     Dates: start: 20150818, end: 20150826
  4. TOREM [Concomitant]
     Active Substance: TORSEMIDE
     Indication: RENAL FAILURE
     Dosage: 20 MG, QD
     Route: 048
  5. NOVORAPID [Concomitant]
     Active Substance: INSULIN ASPART
     Indication: DIABETES MELLITUS
     Dosage: UNK
     Route: 058
  6. DEXAMETHASONE. [Concomitant]
     Active Substance: DEXAMETHASONE
     Indication: VOMITING
     Dosage: 8 MG, CYCLIC
     Route: 042
     Dates: start: 20150818, end: 20150915
  7. ASPIRIN. [Concomitant]
     Active Substance: ASPIRIN
     Indication: CORONARY ARTERY DISEASE
     Dosage: 100 MG, QD
     Route: 048
  8. METOHEXAL [Concomitant]
     Active Substance: METOPROLOL SUCCINATE
     Indication: HYPERTENSION
     Dosage: 190 MG, QD
     Route: 048
  9. NOVALGIN (METAMIZOLE SODIUM) [Concomitant]
     Active Substance: METAMIZOLE SODIUM
     Indication: PAIN
     Dosage: 120 GTT, QD
     Route: 048
     Dates: start: 20141016
  10. IRINOTECAN [Suspect]
     Active Substance: IRINOTECAN
     Indication: COLORECTAL CANCER
     Dosage: 300 MG, Q3W
     Route: 042
     Dates: start: 20150818
  11. IRINOTECAN [Suspect]
     Active Substance: IRINOTECAN
     Dosage: 200 MG, Q3W
     Route: 042
     Dates: start: 20150915
  12. CIPROBAY [Concomitant]
     Active Substance: CIPROFLOXACIN
     Indication: ERYSIPELAS
     Dosage: 500 MG, QD
     Route: 048
     Dates: start: 20150420, end: 20150428
  13. GRANISETRON [Concomitant]
     Active Substance: GRANISETRON
     Indication: VOMITING
     Dosage: 1 MG, CYCLIC
     Route: 042
     Dates: start: 20150818, end: 20150915
  14. SIMVAHEXAL [Concomitant]
     Active Substance: SIMVASTATIN
     Indication: CORONARY ARTERY DISEASE
     Dosage: 40 MG, QD
     Route: 048
  15. MCP [Concomitant]
     Active Substance: METOCLOPRAMIDE HYDROCHLORIDE
     Indication: VOMITING
     Dosage: 3 DF, QD
     Route: 048
     Dates: start: 20141110
  16. PANTOZOL [Concomitant]
     Active Substance: PANTOPRAZOLE SODIUM
     Indication: PRODUCT USED FOR UNKNOWN INDICATION
     Dosage: 40 MG, QD
     Route: 048
     Dates: start: 20140826
  17. AVASTIN [Suspect]
     Active Substance: BEVACIZUMAB
     Dosage: 450 MG, Q2W
     Route: 042
     Dates: start: 20150818
  18. AVASTIN [Suspect]
     Active Substance: BEVACIZUMAB
     Dosage: 450 MG, Q2W
     Route: 042
     Dates: start: 20150915
  19. 5-FLUOROURACIL [Concomitant]
     Active Substance: FLUOROURACIL
     Indication: COLORECTAL CANCER
     Dosage: 800 MG, Q2W
     Route: 040
     Dates: start: 20141016, end: 20150302
  20. FOLINIC ACID [Concomitant]
     Active Substance: LEUCOVORIN
     Indication: COLORECTAL CANCER
     Dosage: 400 MG, QW
     Route: 042
     Dates: start: 20141016, end: 20150302
  21. AZOPT [Concomitant]
     Active Substance: BRINZOLAMIDE
     Indication: GLAUCOMA
     Dosage: 2 GTT, QD
     Route: 047
  22. XELODA [Suspect]
     Active Substance: CAPECITABINE
     Indication: COLORECTAL CANCER
     Dosage: 2000 MG, Q3W
     Route: 048
     Dates: start: 20150323
  23. L-THYROXINE [Concomitant]
     Active Substance: LEVOTHYROXINE
     Indication: HYPOTHYROIDISM
     Dosage: 100 MG, QD
     Route: 048
  24. ZOPICLON [Concomitant]
     Active Substance: ZOPICLONE
     Indication: SLEEP DISORDER
     Dosage: 7.5 MG, UNK
     Route: 048
  25. AVASTIN [Suspect]
     Active Substance: BEVACIZUMAB
     Indication: COLORECTAL CANCER METASTATIC
     Dosage: 485 MG, Q2W
     Route: 042
     Dates: start: 20141016
  26. AMLODIPIN [Concomitant]
     Active Substance: AMLODIPINE BESYLATE
     Indication: HYPERTENSION
     Dosage: 10 MG, QD
     Route: 048
  27. LISINOPRIL. [Concomitant]
     Active Substance: LISINOPRIL
     Indication: HYPERTENSION
     Dosage: 40 MG, QD
     Route: 048
  28. 5-FLUOROURACIL [Concomitant]
     Active Substance: FLUOROURACIL
     Dosage: 5040 MG, Q2W
     Route: 041
     Dates: start: 20141016, end: 20150303
  29. UNACID (AMPICILLIN SODIUM, SULBACTAM SODIUM) [Concomitant]
     Active Substance: AMPICILLIN SODIUM\SULBACTAM SODIUM
     Indication: STREPTOCOCCAL INFECTION
     Dosage: 1500 MG, QD
     Route: 048
     Dates: start: 20150217, end: 20150301
  30. FENTANYL. [Concomitant]
     Active Substance: FENTANYL
     Indication: PAIN IN EXTREMITY
     Dosage: 12 UG, QD
     Route: 065
     Dates: start: 20150216
  31. LEVEMIR [Concomitant]
     Active Substance: INSULIN DETEMIR
     Indication: DIABETES MELLITUS
     Dosage: UNK
     Route: 058

REACTIONS (2)
  - Diarrhoea [Recovered/Resolved]
  - Overdose [Unknown]

NARRATIVE: CASE EVENT DATE: 20150827
